FAERS Safety Report 6511052-7 (Version None)
Quarter: 2009Q4

REPORT INFORMATION
  Report Type: 
  Country: None (occurrence: None)
  Receive Date: 20091222
  Receipt Date: 20090218
  Transmission Date: 20100525
  Serious: No
  Sender: FDA-Public Use
  Company Number: US-ASTRAZENECA-2009UW04679

PATIENT
  Sex: Male

DRUGS (10)
  1. CRESTOR [Suspect]
     Route: 048
     Dates: start: 20081201, end: 20090101
  2. CRESTOR [Suspect]
     Route: 048
     Dates: start: 20090201
  3. PLAVIX [Concomitant]
  4. TRICOR [Concomitant]
  5. TOPROL-XL [Concomitant]
     Route: 048
  6. ASPIRIN [Concomitant]
  7. VIDEX [Concomitant]
     Indication: HIV INFECTION
  8. ZIAGEN [Concomitant]
     Indication: HIV INFECTION
  9. SUSTIVA [Concomitant]
     Indication: HIV INFECTION
  10. WELLBUTRIN [Concomitant]

REACTIONS (3)
  - FAECES DISCOLOURED [None]
  - MYALGIA [None]
  - PELVIC PAIN [None]
